FAERS Safety Report 13005859 (Version 2)
Quarter: 2017Q1

REPORT INFORMATION
  Report Type: Spontaneous
  Country: US (occurrence: US)
  Receive Date: 20161207
  Receipt Date: 20170111
  Transmission Date: 20170428
  Serious: Yes (Other)
  Sender: FDA-Public Use
  Company Number: US-PFIZER INC-2016560712

PATIENT
  Age: 62 Year
  Sex: Female
  Weight: 73 kg

DRUGS (6)
  1. FENTANYL. [Concomitant]
     Active Substance: FENTANYL
     Indication: PAIN
     Dosage: 100 UG, EVERY 3 DAYS
     Route: 062
  2. LYRICA [Suspect]
     Active Substance: PREGABALIN
     Indication: FIBROMYALGIA
     Dosage: UNK UNK, 1X/DAY
     Route: 048
     Dates: end: 201608
  3. LEVOTHYROXINE. [Concomitant]
     Active Substance: LEVOTHYROXINE
     Indication: HYPOTHYROIDISM
     Dosage: 30 UG, 1X/DAY
  4. BACLOFEN. [Concomitant]
     Active Substance: BACLOFEN
     Indication: MUSCLE SPASMS
     Dosage: 10 MG, 3X/DAY
     Route: 048
  5. VERAPAMIL [Concomitant]
     Active Substance: VERAPAMIL HYDROCHLORIDE
     Indication: HYPERTENSION
     Dosage: 125 MG, 1X/DAY
     Route: 048
  6. HYDROCODONE [Concomitant]
     Active Substance: HYDROCODONE
     Indication: PAIN
     Dosage: AS NEEDED, 1/2 TO 1 TABLET EVERY 4 HOURS
     Route: 048

REACTIONS (11)
  - Thrombosis [Recovered/Resolved]
  - Nervous system disorder [Not Recovered/Not Resolved]
  - Spinal fracture [Not Recovered/Not Resolved]
  - Breast cancer [Unknown]
  - Pain [Unknown]
  - Visual acuity reduced [Unknown]
  - Internal haemorrhage [Recovered/Resolved]
  - Peroneal nerve palsy [Not Recovered/Not Resolved]
  - Insomnia [Not Recovered/Not Resolved]
  - Fall [Recovered/Resolved with Sequelae]
  - Fluid retention [Not Recovered/Not Resolved]

NARRATIVE: CASE EVENT DATE: 201105
